FAERS Safety Report 5373917-1 (Version None)
Quarter: 2007Q2

REPORT INFORMATION
  Report Type: 
  Country: None (occurrence: None)
  Receive Date: 20070627
  Receipt Date: 20070130
  Transmission Date: 20071010
  Serious: Yes (Death)
  Sender: FDA-Public Use
  Company Number: 480427

PATIENT
  Age: 59 Year
  Sex: Female

DRUGS (1)
  1. XELODA [Suspect]
     Indication: OVARIAN CANCER
     Dates: start: 20060412, end: 20070108

REACTIONS (2)
  - DISEASE PROGRESSION [None]
  - OVARIAN CANCER [None]
